FAERS Safety Report 21185523 (Version 1)
Quarter: 2022Q3

REPORT INFORMATION
  Report Type: Spontaneous
  Country: US (occurrence: None)
  Receive Date: 20220808
  Receipt Date: 20220808
  Transmission Date: 20221027
  Serious: Yes (Other)
  Sender: FDA-Public Use
  Company Number: None

PATIENT
  Sex: Female
  Weight: 85.95 kg

DRUGS (3)
  1. CETIRIZINE [Suspect]
     Active Substance: CETIRIZINE HYDROCHLORIDE
     Indication: Multiple allergies
     Dosage: FREQUENCY : DAILY;?
  2. METHYLPREDNISOLONE [Concomitant]
     Active Substance: METHYLPREDNISOLONE
  3. AUGMENTIN [Concomitant]
     Active Substance: AMOXICILLIN\CLAVULANATE POTASSIUM

REACTIONS (23)
  - Chest discomfort [None]
  - Memory impairment [None]
  - Thinking abnormal [None]
  - Respiration abnormal [None]
  - Condition aggravated [None]
  - Heart rate increased [None]
  - Feeling hot [None]
  - Paralysis [None]
  - Pruritus [None]
  - Somnolence [None]
  - Fatigue [None]
  - Dizziness [None]
  - Feeling hot [None]
  - Hyperhidrosis [None]
  - Throat irritation [None]
  - Chest pain [None]
  - Nausea [None]
  - Eating disorder [None]
  - Abdominal discomfort [None]
  - Dry mouth [None]
  - Oropharyngeal pain [None]
  - Urinary incontinence [None]
  - Cough [None]
